FAERS Safety Report 15562509 (Version 2)
Quarter: 2018Q4

REPORT INFORMATION
  Report Type: Spontaneous
  Country: PR (occurrence: PR)
  Receive Date: 20181029
  Receipt Date: 20181120
  Transmission Date: 20190205
  Serious: No
  Sender: FDA-Public Use
  Company Number: PR-PFIZER INC-2018438149

PATIENT
  Age: 86 Year
  Sex: Female
  Weight: 70 kg

DRUGS (2)
  1. IBRANCE [Suspect]
     Active Substance: PALBOCICLIB
     Indication: BREAST CANCER
     Dosage: 125 MG, CYCLIC (DAILY FOR 21 DAYS)
     Route: 048
     Dates: start: 20180927
  2. IBRANCE [Suspect]
     Active Substance: PALBOCICLIB
     Dosage: 125 MG, ALTERNATE DAY(125 MG EVERY OTHER DAY)
     Route: 048

REACTIONS (4)
  - Platelet count decreased [Unknown]
  - Fatigue [Unknown]
  - Haemoglobin decreased [Unknown]
  - Hypotension [Unknown]
